FAERS Safety Report 11204529 (Version 2)
Quarter: 2015Q3

REPORT INFORMATION
  Report Type: Report from Study
  Country: TR (occurrence: TR)
  Receive Date: 20150621
  Receipt Date: 20150709
  Transmission Date: 20151125
  Serious: Yes (Hospitalization, Other)
  Sender: FDA-Public Use
  Company Number: TR-ABBVIE-15K-161-1412383-00

PATIENT
  Age: 34 Year
  Sex: Male
  Weight: 100 kg

DRUGS (3)
  1. HUMIRA [Suspect]
     Active Substance: ADALIMUMAB
     Indication: ANKYLOSING SPONDYLITIS
     Route: 058
     Dates: start: 20140605, end: 20150609
  2. ARVELES [Concomitant]
     Active Substance: DEXKETOPROFEN
     Indication: INGUINAL HERNIA
     Route: 048
     Dates: start: 20150706
  3. CEFUROXIME. [Concomitant]
     Active Substance: CEFUROXIME
     Indication: INGUINAL HERNIA
     Route: 048
     Dates: start: 20150706

REACTIONS (1)
  - Inguinal hernia [Recovered/Resolved]

NARRATIVE: CASE EVENT DATE: 201501
